FAERS Safety Report 4641745-8 (Version None)
Quarter: 2005Q2

REPORT INFORMATION
  Report Type: 
  Country: None (occurrence: None)
  Receive Date: 20050420
  Receipt Date: 20050414
  Transmission Date: 20051028
  Serious: Yes (Hospitalization)
  Sender: FDA-Public Use
  Company Number: Q05-012

PATIENT
  Age: 71 Year
  Sex: Male
  Weight: 77.0208 kg

DRUGS (6)
  1. SAMARIUM SM-153 (QUADRAMET) BY CYTOGEN [Suspect]
     Indication: BONE PAIN
     Dosage: 76.5 MCI IV
     Route: 042
     Dates: start: 20050330
  2. SAMARIUM SM-153 (QUADRAMET) BY CYTOGEN [Suspect]
     Indication: METASTASES TO BONE
     Dosage: 76.5 MCI IV
     Route: 042
     Dates: start: 20050330
  3. PROCRIT [Suspect]
     Indication: ANAEMIA
     Dosage: 60,000 IU SQ
     Route: 058
     Dates: start: 20050414
  4. HYDROCODONE BITARTRATE [Concomitant]
  5. KYTRIL [Concomitant]
  6. ULTRACET [Concomitant]

REACTIONS (2)
  - PYELONEPHRITIS [None]
  - SEPSIS [None]
